FAERS Safety Report 25859520 (Version 1)
Quarter: 2025Q3

REPORT INFORMATION
  Report Type: Spontaneous
  Country: CN (occurrence: CN)
  Receive Date: 20250929
  Receipt Date: 20250929
  Transmission Date: 20251020
  Serious: Yes (Life-Threatening)
  Sender: FRESENIUS KABI
  Company Number: CN-FreseniusKabi-FK202513261

PATIENT
  Age: 43 Year
  Sex: Male
  Weight: 71 kg

DRUGS (4)
  1. PROPOFOL [Suspect]
     Active Substance: PROPOFOL
     Indication: Induction of anaesthesia
     Dosage: FOA: EMULSION FOR INJECTION?AT 09:30
     Route: 040
     Dates: start: 20250919, end: 20250919
  2. REMIFENTANIL HYDROCHLORIDE [Suspect]
     Active Substance: REMIFENTANIL HYDROCHLORIDE
     Indication: Induction of anaesthesia
     Dosage: FOA: POWDER FOR INJECTION?ROA: INTRAVENOUS
     Dates: start: 20250919, end: 20250919
  3. OXYCODONE [Suspect]
     Active Substance: OXYCODONE
     Indication: Induction of anaesthesia
     Dosage: FOA: INJECTION
     Route: 040
     Dates: start: 20250919, end: 20250919
  4. ROCURONIUM BROMIDE [Suspect]
     Active Substance: ROCURONIUM BROMIDE
     Indication: Induction of anaesthesia
     Dosage: FOA: INJECTION?ROA: INTRAVENOUS
     Dates: start: 20250919, end: 20250919

REACTIONS (1)
  - Anaphylactic shock [Recovering/Resolving]

NARRATIVE: CASE EVENT DATE: 20250919
